FAERS Safety Report 5378919-7 (Version None)
Quarter: 2007Q3

REPORT INFORMATION
  Report Type: 
  Country: None (occurrence: None)
  Receive Date: 20070705
  Receipt Date: 20060821
  Transmission Date: 20080115
  Serious: No
  Sender: FDA-Public Use
  Company Number: A0617490A

PATIENT
  Age: 57 Year
  Sex: Female

DRUGS (1)
  1. PARNATE [Suspect]
     Indication: DEPRESSION
     Dosage: 60MG PER DAY
     Route: 048

REACTIONS (7)
  - MEMORY IMPAIRMENT [None]
  - NAUSEA [None]
  - OEDEMA PERIPHERAL [None]
  - PAIN IN EXTREMITY [None]
  - SLEEP DISORDER [None]
  - TENSION [None]
  - WEIGHT INCREASED [None]
